FAERS Safety Report 18409347 (Version 2)
Quarter: 2020Q4

REPORT INFORMATION
  Report Type: Other
  Country: PL (occurrence: PL)
  Receive Date: 20201021
  Receipt Date: 20201108
  Transmission Date: 20210114
  Serious: No
  Sender: FDA-Public Use
  Company Number: PL-ROCHE-2696079

PATIENT
  Age: 30 Year
  Sex: Female
  Weight: 55 kg

DRUGS (1)
  1. HERCEPTIN [Suspect]
     Active Substance: TRASTUZUMAB
     Indication: HER2 POSITIVE BREAST CANCER
     Dosage: ONGOING
     Route: 058
     Dates: start: 202005

REACTIONS (5)
  - Injection site erythema [Recovered/Resolved]
  - Haematochezia [Not Recovered/Not Resolved]
  - Pruritus [Recovered/Resolved]
  - Epistaxis [Not Recovered/Not Resolved]
  - Heart rate increased [Recovered/Resolved]

NARRATIVE: CASE EVENT DATE: 202005
